FAERS Safety Report 6071417-7 (Version None)
Quarter: 2009Q1

REPORT INFORMATION
  Report Type: 
  Country: None (occurrence: None)
  Receive Date: 20090204
  Receipt Date: 20090126
  Transmission Date: 20090719
  Serious: Yes (Hospitalization)
  Sender: FDA-Public Use
  Company Number: US025351

PATIENT
  Age: 48 Year
  Sex: Female

DRUGS (1)
  1. ACTIQ [Suspect]
     Indication: FIBROMYALGIA
     Dosage: BUCCAL
     Route: 002

REACTIONS (2)
  - DYSPNOEA [None]
  - PNEUMONIA [None]
